FAERS Safety Report 5267204-X (Version None)
Quarter: 2007Q1

REPORT INFORMATION
  Report Type: 
  Country: None (occurrence: None)
  Receive Date: 20070316
  Receipt Date: 20070314
  Transmission Date: 20070707
  Serious: Yes (Death, Hospitalization)
  Sender: FDA-Public Use
  Company Number: US-SANOFI-SYNTHELABO-F03200700057

PATIENT
  Sex: Male
  Weight: 71.7 kg

DRUGS (18)
  1. MILK OF MAGNESIA [Concomitant]
     Route: 048
     Dates: start: 20061125, end: 20070210
  2. NEXIUM [Concomitant]
     Route: 048
     Dates: start: 20070206, end: 20070210
  3. ZOFRAN [Concomitant]
     Route: 048
     Dates: start: 20061117, end: 20070210
  4. MYLANTA [Concomitant]
     Dosage: 1-2 TABLESPOONS AS NECESSARY
     Route: 048
     Dates: start: 20061107, end: 20070210
  5. COLACE [Concomitant]
     Route: 048
     Dates: start: 20070206, end: 20070210
  6. GAS-X [Concomitant]
     Dosage: 1-2 TABLETS AS NECESSARY
     Route: 048
     Dates: start: 20070111, end: 20070210
  7. PROCTOSOL-HC [Concomitant]
     Route: 061
     Dates: start: 20070111, end: 20070210
  8. ANUSOL HC [Concomitant]
     Route: 054
     Dates: start: 20070111, end: 20070208
  9. MULTI-VITAMINS [Concomitant]
     Route: 048
     Dates: start: 20070111, end: 20070210
  10. MEGACE [Concomitant]
     Route: 048
     Dates: start: 20070111, end: 20070210
  11. OXYCONTIN [Concomitant]
     Route: 048
     Dates: start: 20061229, end: 20070210
  12. OXYCODONE HCL [Concomitant]
     Route: 048
     Dates: start: 20061229, end: 20070210
  13. PANCREASE [Concomitant]
     Dosage: 5 TABLETS AT MEALTIME AND 4 AT BEDTIME
     Route: 048
  14. MIRALAX [Concomitant]
     Route: 048
     Dates: start: 20070208, end: 20070210
  15. FLUOROURACIL [Suspect]
     Route: 042
     Dates: start: 20070208, end: 20070208
  16. LEUCOVORIN CALCIUM [Suspect]
     Route: 042
     Dates: start: 20070208, end: 20070208
  17. SUTENT [Suspect]
     Route: 048
     Dates: start: 20070208, end: 20070209
  18. OXALIPLATIN [Suspect]
     Indication: PANCREATIC CARCINOMA METASTATIC
     Route: 042
     Dates: start: 20070208, end: 20070208

REACTIONS (4)
  - DISEASE PROGRESSION [None]
  - MENTAL STATUS CHANGES [None]
  - PAIN [None]
  - VOMITING [None]
